FAERS Safety Report 14567268 (Version 1)
Quarter: 2018Q1

REPORT INFORMATION
  Report Type: Spontaneous
  Country: FR (occurrence: FR)
  Receive Date: 20180223
  Receipt Date: 20180223
  Transmission Date: 20180509
  Serious: Yes (Death)
  Sender: FDA-Public Use
  Company Number: FR-PFIZER INC-2018076206

PATIENT
  Age: 71 Year
  Sex: Female
  Weight: 70 kg

DRUGS (9)
  1. LERCAN [Concomitant]
     Active Substance: LERCANIDIPINE
     Dosage: UNK
  2. FELDENE [Suspect]
     Active Substance: PIROXICAM
     Indication: BACK PAIN
     Dosage: 20 MG, 1X/DAY
     Route: 030
     Dates: start: 20171230, end: 20180101
  3. TRAMADOL HYDROCHLORIDE. [Concomitant]
     Active Substance: TRAMADOL HYDROCHLORIDE
     Dosage: UNK
  4. INIPOMP [Concomitant]
     Active Substance: PANTOPRAZOLE SODIUM
     Dosage: UNK
  5. VOLTARENE (DICLOFENAC SODIUM) [Concomitant]
     Active Substance: DICLOFENAC SODIUM
     Dosage: UNK
     Route: 048
  6. VOLTARENE EMULGEL [Concomitant]
     Active Substance: DICLOFENAC DIETHYLAMINE
     Dosage: UNK
  7. DOLIPRANE [Concomitant]
     Active Substance: ACETAMINOPHEN
  8. SYMBICORT [Concomitant]
     Active Substance: BUDESONIDE\FORMOTEROL FUMARATE DIHYDRATE
     Dosage: UNK
  9. CELESTENE /00008501/ [Concomitant]
     Active Substance: BETAMETHASONE

REACTIONS (2)
  - Acute kidney injury [Fatal]
  - Multiple organ dysfunction syndrome [Fatal]
